FAERS Safety Report 4490403-1 (Version None)
Quarter: 2004Q4

REPORT INFORMATION
  Report Type: 
  Country: None (occurrence: None)
  Receive Date: 20041028
  Receipt Date: 20041014
  Transmission Date: 20050328
  Serious: Yes (Other)
  Sender: FDA-Public Use
  Company Number: NL-2004-033491

PATIENT

DRUGS (4)
  1. FLUDARABINE PHOSPHATE [Suspect]
     Indication: AUTOLOGOUS BONE MARROW TRANSPLANTATION THERAPY
     Dosage: 30 MG/M2
  2. ANTITHYMOCYTE IMMUNOGLOBULIN (RABBIT) [Concomitant]
  3. CYCLOPHOSPHAMIDE [Concomitant]
  4. ACYCLOVIR [Concomitant]

REACTIONS (6)
  - APLASIA [None]
  - BLOOD TRIGLYCERIDES INCREASED [None]
  - COAGULOPATHY [None]
  - FIBRIN D DIMER INCREASED [None]
  - HISTIOCYTOSIS HAEMATOPHAGIC [None]
  - SERUM FERRITIN INCREASED [None]
